FAERS Safety Report 9015810 (Version 4)
Quarter: 2013Q3

REPORT INFORMATION
  Report Type: Spontaneous
  Country: US (occurrence: None)
  Receive Date: 20130102
  Receipt Date: 20130903
  Transmission Date: 20140515
  Serious: Yes (Other)
  Sender: FDA-Public Use
  Company Number: US-2012-11828

PATIENT
  Age: 53 Year
  Sex: Male

DRUGS (9)
  1. TOLVAPTAN [Suspect]
     Indication: CONGENITAL CYSTIC KIDNEY DISEASE
     Route: 048
     Dates: start: 20110810, end: 20130103
  2. VITAMIN D (ERGOCALCIFEROL) [Concomitant]
  3. VYTORIN [Concomitant]
  4. JANUVIA (SITAGLIPTIN PHOSPHATE) [Concomitant]
  5. ASPIRIN (ACETYLSALICYLIC ACID) [Concomitant]
  6. DIPHENHYDRAMINE (DIPHENHYDRAMINE HYDROCHLORIDE) (UNKNOWN) (DIPHENHYDRAMINE HYDROCHLORIDE) [Concomitant]
  7. ACETAMINOPHEN (PARACETAMOL) [Concomitant]
  8. RIBOFLAVIN (RIBOFLAVIN) [Concomitant]
  9. FAMOTIDINE (FAMOTIDINE) [Concomitant]

REACTIONS (16)
  - Alanine aminotransferase increased [None]
  - Aspartate aminotransferase increased [None]
  - Total cholesterol/HDL ratio decreased [None]
  - Blood glucose increased [None]
  - Blood urea increased [None]
  - Blood creatinine increased [None]
  - Glycosylated haemoglobin increased [None]
  - Blood cholesterol increased [None]
  - Blood triglycerides increased [None]
  - Low density lipoprotein increased [None]
  - High density lipoprotein decreased [None]
  - Glomerular filtration rate decreased [None]
  - Liver injury [None]
  - Viral infection [None]
  - Non-alcoholic steatohepatitis [None]
  - Hepatic steatosis [None]
